FAERS Safety Report 26196092 (Version 1)
Quarter: 2025Q4

REPORT INFORMATION
  Report Type: Spontaneous
  Country: CN (occurrence: CN)
  Receive Date: 20251224
  Receipt Date: 20251224
  Transmission Date: 20260118
  Serious: Yes (Other)
  Sender: BRACCO
  Company Number: CN-BRACCO-2025CN08981

PATIENT
  Age: 86 Year
  Sex: Female
  Weight: 43.5 kg

DRUGS (1)
  1. IOMEPROL [Suspect]
     Active Substance: IOMEPROL
     Indication: Angiogram
     Dosage: 85 ML, SINGLE
     Dates: start: 20251215, end: 20251215

REACTIONS (10)
  - Blood pressure increased [Unknown]
  - Abdominal distension [Unknown]
  - Defaecation urgency [Unknown]
  - Back pain [Unknown]
  - Chest discomfort [Unknown]
  - Palpitations [Unknown]
  - Asthenia [Unknown]
  - Pain [Unknown]
  - Dysphoria [Unknown]
  - Agitation [Unknown]

NARRATIVE: CASE EVENT DATE: 20251215
